FAERS Safety Report 16294114 (Version 1)
Quarter: 2019Q2

REPORT INFORMATION
  Report Type: Spontaneous
  Country: US (occurrence: US)
  Receive Date: 20190509
  Receipt Date: 20190509
  Transmission Date: 20190711
  Serious: No
  Sender: FDA-Public Use
  Company Number: US-ROCHE-2145094

PATIENT
  Age: 68 Year
  Sex: Female

DRUGS (1)
  1. ESBRIET [Suspect]
     Active Substance: PIRFENIDONE
     Indication: PULMONARY FIBROSIS
     Dosage: 3 CAPSULES, ONGOING: YES
     Route: 048
     Dates: start: 20180104

REACTIONS (2)
  - Skin wrinkling [Unknown]
  - Dry skin [Unknown]

NARRATIVE: CASE EVENT DATE: 20180620
